FAERS Safety Report 5301111-9 (Version None)
Quarter: 2007Q2

REPORT INFORMATION
  Report Type: 
  Country: None (occurrence: None)
  Receive Date: 20070418
  Receipt Date: 20070410
  Transmission Date: 20071010
  Serious: Yes (Other)
  Sender: FDA-Public Use
  Company Number: US-BOEHRINGER INGELHEIM PHARMACEUTICALS, INC.-2007-DE-02071GD

PATIENT
  Age: 15 Month

DRUGS (6)
  1. ASPIRIN [Suspect]
     Indication: ANTICOAGULANT THERAPY
  2. DIPYRIDAMOLE [Suspect]
     Indication: ANTICOAGULANT THERAPY
  3. WARFARIN SODIUM [Suspect]
     Indication: ANTICOAGULANT THERAPY
     Dosage: MODIFIED ADMINISTRATION TO MAINTAIN TARGET INR VALUES (2.5 - 3.5)
  4. CLOPIDOGREL [Suspect]
     Indication: ANTICOAGULANT THERAPY
  5. PROTAMINE SULFATE [Suspect]
  6. HEPARIN [Concomitant]
     Indication: COAGULATION TIME ABNORMAL
     Route: 042

REACTIONS (3)
  - COAGULOPATHY [None]
  - DRUG RESISTANCE [None]
  - HAEMORRHAGE [None]
